FAERS Safety Report 9049584 (Version 1)
Quarter: 2013Q1

REPORT INFORMATION
  Report Type: Spontaneous
  Country: IN (occurrence: IN)
  Receive Date: 20130205
  Receipt Date: 20130205
  Transmission Date: 20140127
  Serious: Yes (Hospitalization, Other)
  Sender: FDA-Public Use
  Company Number: IN-PFIZER INC-2013044258

PATIENT
  Age: 24 Year
  Sex: Male

DRUGS (2)
  1. PHENYTOIN [Suspect]
     Dosage: UNK
  2. PHENOBARBITAL [Suspect]
     Indication: CONVULSION
     Dosage: UNK

REACTIONS (6)
  - Overdose [Recovered/Resolved]
  - Toxicity to various agents [Unknown]
  - Suicide attempt [Unknown]
  - Loss of consciousness [Recovering/Resolving]
  - Pulmonary oedema [Recovering/Resolving]
  - Cognitive disorder [Unknown]
